FAERS Safety Report 5854312-5 (Version None)
Quarter: 2008Q3

REPORT INFORMATION
  Report Type: 
  Country: None (occurrence: None)
  Receive Date: 20080822
  Receipt Date: 20080813
  Transmission Date: 20090109
  Serious: Yes (Other)
  Sender: FDA-Public Use
  Company Number: US-PFIZER INC-2008008753

PATIENT
  Sex: Male
  Weight: 81.6 kg

DRUGS (1)
  1. CHANTIX [Suspect]
     Indication: SMOKING CESSATION THERAPY
     Dates: start: 20071203, end: 20071217

REACTIONS (7)
  - DEPRESSION [None]
  - HYPERHIDROSIS [None]
  - MOOD SWINGS [None]
  - NIGHTMARE [None]
  - PERSONALITY CHANGE [None]
  - SWELLING [None]
  - SWELLING FACE [None]
